FAERS Safety Report 9894210 (Version 2)
Quarter: 2014Q2

REPORT INFORMATION
  Report Type: Spontaneous
  Country: US (occurrence: US)
  Receive Date: 20140213
  Receipt Date: 20140411
  Transmission Date: 20141212
  Serious: Yes (Hospitalization, Other)
  Sender: FDA-Public Use
  Company Number: US-ASTRAZENECA-2014SE08750

PATIENT
  Age: 64 Year
  Sex: Female

DRUGS (4)
  1. FASLODEX [Suspect]
     Indication: BREAST CANCER METASTATIC
     Route: 030
  2. FASLODEX [Suspect]
     Indication: BREAST CANCER METASTATIC
     Route: 030
     Dates: start: 20140204
  3. XARELTO [Concomitant]
     Indication: ATRIAL FIBRILLATION
  4. XARELTO [Concomitant]
     Indication: ATRIAL FIBRILLATION

REACTIONS (5)
  - Arterial injury [Recovered/Resolved]
  - Injection site pain [Not Recovered/Not Resolved]
  - Injection site haematoma [Recovered/Resolved]
  - Wrong technique in drug usage process [Unknown]
  - Atrial fibrillation [Not Recovered/Not Resolved]
